FAERS Safety Report 4935062-6 (Version None)
Quarter: 2006Q1

REPORT INFORMATION
  Report Type: 
  Country: None (occurrence: None)
  Receive Date: 20060306
  Receipt Date: 20060306
  Transmission Date: 20060701
  Serious: Yes (Other)
  Sender: FDA-Public Use
  Company Number: None

PATIENT
  Age: 52 Year
  Sex: Male
  Weight: 70 kg

DRUGS (11)
  1. AVASTIN [Suspect]
     Indication: RECTAL CANCER METASTATIC
     Dosage: 5 MG/KG X 1 IV
     Route: 042
     Dates: start: 20050308
  2. CISPLATIN/ETOPOSIDE [Concomitant]
  3. 5-FU/IRINOTECAN [Concomitant]
  4. NEUPOGEN [Concomitant]
  5. ZOMETA [Concomitant]
  6. ARANESP [Concomitant]
  7. CEFEPIME [Concomitant]
  8. ATENOLOL [Concomitant]
  9. OXYCONTIN [Concomitant]
  10. OXYCODONE [Concomitant]
  11. ATIVAN [Concomitant]

REACTIONS (5)
  - APHASIA [None]
  - BLINDNESS [None]
  - CONVULSION [None]
  - NEUTROPENIA [None]
  - REVERSIBLE POSTERIOR LEUKOENCEPHALOPATHY SYNDROME [None]
